FAERS Safety Report 8059226-0 (Version None)
Quarter: 2012Q1

REPORT INFORMATION
  Report Type: 
  Country: None (occurrence: None)
  Receive Date: 20120112
  Receipt Date: 20120102
  Transmission Date: 20120608
  Serious: Yes (Hospitalization)
  Sender: FDA-Public Use
  Company Number: 1000026789

PATIENT
  Age: 88 Year
  Sex: Female

DRUGS (11)
  1. ESCITALOPRAM OXALATE [Suspect]
     Indication: DEPRESSION
     Dosage: 5 MG (5 MG, 1 IN 1 D), ORAL
     Route: 048
     Dates: start: 20111210
  2. INNOHEP (TINZAPARIN SODIUM) (TINZAPARIN SODIUM) [Concomitant]
  3. SINGULAIR (MONTELUKAST SODIUM) (MONTELUKAST SODIUM) [Concomitant]
  4. ACETAMINOPHEN AND TRAMADOL HCL [Suspect]
     Dosage: 2 TO 3 TABLETS (362.5 MG, 1 IN 1 D), ORAL
     Route: 048
     Dates: start: 20111205, end: 20111212
  5. ATORVASTATIN CALCIUM [Concomitant]
  6. COUMADINE (WARFARIN SODIUM) (HEPARIN SODIUM) [Concomitant]
  7. ALLOPURINOL [Concomitant]
  8. MOVICOL (MACROGEL, SODIUM BICARBONATE, POTASSIUM CHLORIDE, SODIUM CHLO [Concomitant]
  9. SERETIDE (FLUTICASONE, SALMETEROL) (FLUTICASONE, SALMETEROL) [Concomitant]
  10. AMLODIPINE BESYLATE [Concomitant]
  11. CACIT D3 (CALCIUM CARBONATE, CHOLECALCIFEROL) (CALCIUM CARBONATE, CHOL [Concomitant]

REACTIONS (6)
  - EPISTAXIS [None]
  - FACIAL BONES FRACTURE [None]
  - HAEMATOMA [None]
  - HALLUCINATION, VISUAL [None]
  - BACK PAIN [None]
  - CONFUSIONAL STATE [None]
